FAERS Safety Report 5887061-8 (Version None)
Quarter: 2008Q3

REPORT INFORMATION
  Report Type: 
  Country: None (occurrence: None)
  Receive Date: 20080917
  Receipt Date: 20080905
  Transmission Date: 20090109
  Serious: Yes (Other)
  Sender: FDA-Public Use
  Company Number: US-PFIZER INC-2008007077

PATIENT
  Sex: Male

DRUGS (1)
  1. BEXTRA [Suspect]

REACTIONS (1)
  - STEVENS-JOHNSON SYNDROME [None]
